FAERS Safety Report 6714359-3 (Version None)
Quarter: 2010Q2

REPORT INFORMATION
  Report Type: 
  Country: None (occurrence: None)
  Receive Date: 20100506
  Receipt Date: 20100428
  Transmission Date: 20101027
  Serious: Yes (Hospitalization, Other)
  Sender: FDA-Public Use
  Company Number: US-AMGEN-KDL409427

PATIENT
  Sex: Male

DRUGS (4)
  1. PROCRIT [Suspect]
     Indication: ANAEMIA
  2. UNSPECIFIED ANTIDIABETIC AGENT [Concomitant]
     Route: 048
  3. IRON [Concomitant]
     Route: 048
  4. HEPARIN [Concomitant]

REACTIONS (10)
  - ABASIA [None]
  - BRAIN HYPOXIA [None]
  - CARDIAC FAILURE CONGESTIVE [None]
  - CONFUSIONAL STATE [None]
  - DEMENTIA ALZHEIMER'S TYPE [None]
  - DRUG HYPERSENSITIVITY [None]
  - HOSPITALISATION [None]
  - INFECTION [None]
  - LUNG INFECTION [None]
  - PULMONARY EMBOLISM [None]
